FAERS Safety Report 21558666 (Version 1)
Quarter: 2022Q4

REPORT INFORMATION
  Report Type: Spontaneous
  Country: US (occurrence: US)
  Receive Date: 20221107
  Receipt Date: 20221107
  Transmission Date: 20230113
  Serious: Yes (Other)
  Sender: FDA-Public Use
  Company Number: US-ORGANON-O2211USA000279

PATIENT
  Sex: Female
  Weight: 56.689 kg

DRUGS (3)
  1. NEXPLANON [Suspect]
     Active Substance: ETONOGESTREL
     Indication: Contraception
     Dosage: 1 ROD IN LEFT ARM FOR 5 YEARS
     Dates: start: 20190719
  2. LEXAPRO [Concomitant]
     Active Substance: ESCITALOPRAM OXALATE
     Dosage: UNK
  3. ADDERALL [Concomitant]
     Active Substance: AMPHETAMINE ASPARTATE\AMPHETAMINE SULFATE\DEXTROAMPHETAMINE SACCHARATE\DEXTROAMPHETAMINE SULFATE
     Dosage: UNK

REACTIONS (8)
  - Limb operation [Unknown]
  - Device dislocation [Not Recovered/Not Resolved]
  - Amenorrhoea [Recovered/Resolved]
  - Weight increased [Not Recovered/Not Resolved]
  - Complication associated with device [Recovered/Resolved]
  - Device issue [Not Recovered/Not Resolved]
  - Product prescribing issue [Unknown]
  - Incorrect product administration duration [Unknown]

NARRATIVE: CASE EVENT DATE: 20190101
